FAERS Safety Report 17366725 (Version 5)
Quarter: 2020Q2

REPORT INFORMATION
  Report Type: Spontaneous
  Country: US (occurrence: US)
  Receive Date: 20200204
  Receipt Date: 20200605
  Transmission Date: 20200713
  Serious: No
  Sender: FDA-Public Use
  Company Number: US-PFIZER INC-2020045274

PATIENT
  Age: 56 Year
  Sex: Male

DRUGS (1)
  1. INLYTA [Suspect]
     Active Substance: AXITINIB
     Indication: RENAL CANCER
     Dosage: 5 MG, 2X/DAY (1 PO(PER ORAL) Q12HRS(EVERY 12HRS)/ 5MG EVERY 12 HOURS)
     Route: 048

REACTIONS (5)
  - Sinusitis [Unknown]
  - Product dose omission [Unknown]
  - Nausea [Unknown]
  - Pharyngeal swelling [Unknown]
  - Neoplasm progression [Unknown]
